FAERS Safety Report 4267176-0 (Version None)
Quarter: 2004Q1

REPORT INFORMATION
  Report Type: 
  Country: None (occurrence: None)
  Receive Date: 20040107
  Receipt Date: 20031222
  Transmission Date: 20041129
  Serious: No
  Sender: FDA-Public Use
  Company Number: 2003PK01631

PATIENT
  Age: 55 Year
  Sex: Female
  Weight: 82 kg

DRUGS (8)
  1. ROSUVASTATIN [Suspect]
     Indication: HYPERCHOLESTEROLAEMIA
     Dosage: 10 MG DAILY PO
     Route: 048
     Dates: start: 20020917, end: 20030918
  2. TRAMADOL HCL [Suspect]
     Indication: PAIN
     Dosage: 20 GTT PRN
  3. METFORMIN HCL [Suspect]
     Indication: DIABETES MELLITUS
     Dates: start: 20021111
  4. AMARYL [Suspect]
     Indication: DIABETES MELLITUS
     Dates: start: 20021111
  5. AGOPTON [Suspect]
     Indication: GASTROINTESTINAL DISORDER
     Dates: start: 20021111
  6. BISOBLOC [Suspect]
     Indication: CORONARY ARTERY DISEASE
     Dosage: 5 MG DAILY
  7. BERODUAL [Suspect]
     Indication: CHRONIC OBSTRUCTIVE AIRWAYS DISEASE
     Dates: start: 20000101
  8. NORVASC [Concomitant]

REACTIONS (1)
  - SYSTEMIC LUPUS ERYTHEMATOSUS [None]
